FAERS Safety Report 8941241 (Version 1)
Quarter: 2012Q4

REPORT INFORMATION
  Report Type: 
  Country: US (occurrence: US)
  Receive Date: 20121203
  Receipt Date: 20121203
  Transmission Date: 20130627
  Serious: Yes (Other)
  Sender: FDA-Public Use
  Company Number: US-BRISTOL-MYERS SQUIBB COMPANY-17149824

PATIENT
  Age: 78 Year
  Sex: Male
  Weight: 79.36 kg

DRUGS (1)
  1. COUMADIN TABS [Suspect]
     Dosage: 6mg and 1mg:6.5mg 4 dys/week,6mg remaining 3 days and 6.5mg 5 days per week and 6mg 2 days per week
     Dates: start: 1998

REACTIONS (2)
  - Atrial fibrillation [Unknown]
  - International normalised ratio fluctuation [Unknown]
